FAERS Safety Report 13112727 (Version 1)
Quarter: 2017Q1

REPORT INFORMATION
  Report Type: Report from Study
  Country: US (occurrence: US)
  Receive Date: 20170113
  Receipt Date: 20170113
  Transmission Date: 20170428
  Serious: Yes (Other)
  Sender: FDA-Public Use
  Company Number: US-ROCHE-1796434

PATIENT
  Age: 81 Year
  Sex: Female

DRUGS (3)
  1. LUCENTIS [Suspect]
     Active Substance: RANIBIZUMAB
     Indication: NEOVASCULAR AGE-RELATED MACULAR DEGENERATION
     Dosage: RIGHT
     Route: 050
     Dates: start: 20130711
  2. LUCENTIS [Suspect]
     Active Substance: RANIBIZUMAB
     Dosage: RIGHT EYE
     Route: 050
     Dates: start: 20160714
  3. LUCENTIS [Suspect]
     Active Substance: RANIBIZUMAB
     Dosage: MONTHLY THRICE AND THEN AS REQUIRED
     Route: 050

REACTIONS (10)
  - Aphasia [Not Recovered/Not Resolved]
  - Pneumonectomy [Unknown]
  - Eye disorder [Unknown]
  - Dementia [Unknown]
  - Fall [Unknown]
  - Neoplasm malignant [Unknown]
  - Wrist fracture [Recovering/Resolving]
  - Visual impairment [Unknown]
  - Dysphonia [Not Recovered/Not Resolved]
  - Confusional state [Unknown]

NARRATIVE: CASE EVENT DATE: 201701
